FAERS Safety Report 20133122 (Version 1)
Quarter: 2021Q4

REPORT INFORMATION
  Report Type: Spontaneous
  Country: DE (occurrence: DE)
  Receive Date: 20211201
  Receipt Date: 20211201
  Transmission Date: 20220303
  Serious: Yes (Hospitalization, Other)
  Sender: FDA-Public Use
  Company Number: DE-009507513-2111DEU003785

PATIENT
  Age: 32 Year
  Sex: Male

DRUGS (2)
  1. PIPERACILLIN AND TAZOBACTAM [Suspect]
     Active Substance: PIPERACILLIN SODIUM\TAZOBACTAM SODIUM
     Indication: Aplasia
     Dosage: 4.5 GRAM
     Route: 042
     Dates: start: 20181101, end: 20181103
  2. POSACONAZOLE [Suspect]
     Active Substance: POSACONAZOLE
     Indication: Antifungal prophylaxis
     Dosage: 200 MILLIGRAM
     Route: 048
     Dates: start: 20181101, end: 20181103

REACTIONS (17)
  - Drug ineffective [Recovered/Resolved]
  - Escherichia test positive [Recovered/Resolved]
  - Staphylococcal infection [Recovered/Resolved]
  - Lymphadenopathy mediastinal [Recovered/Resolved]
  - Lung infiltration [Recovered/Resolved]
  - Pneumonia fungal [Recovered/Resolved]
  - Pulmonary mass [Recovered/Resolved]
  - Septic encephalopathy [Recovered/Resolved]
  - Brain oedema [Recovered/Resolved]
  - Cerebral toxoplasmosis [Recovered/Resolved]
  - Tuberculosis of central nervous system [Recovered/Resolved]
  - Klebsiella sepsis [Recovered/Resolved]
  - Gastroenteritis clostridial [Recovered/Resolved]
  - Staphylococcal sepsis [Recovered/Resolved]
  - Oral herpes [Recovered/Resolved]
  - Multiple organ dysfunction syndrome [Recovered/Resolved]
  - Pneumonia klebsiella [Recovered/Resolved]

NARRATIVE: CASE EVENT DATE: 20181103
